FAERS Safety Report 7961226-3 (Version None)
Quarter: 2011Q4

REPORT INFORMATION
  Report Type: 
  Country: None (occurrence: None)
  Receive Date: 20111207
  Receipt Date: 20111201
  Transmission Date: 20120403
  Serious: Yes (Death, Hospitalization, Other)
  Sender: FDA-Public Use
  Company Number: ES-ELI_LILLY_AND_COMPANY-ES201112000436

PATIENT
  Sex: Female

DRUGS (12)
  1. TRAZODONE HCL [Concomitant]
     Indication: DEPRESSION
     Dosage: 100 MG, QD
     Route: 048
  2. DURAGESIC-100 [Concomitant]
     Indication: ANALGESIC THERAPY
     Dosage: 1 DF, 2/W
     Route: 062
  3. FORTEO [Suspect]
     Indication: OSTEOPOROSIS
     Dosage: 20 UG, QD
     Route: 058
     Dates: start: 20111108, end: 20111101
  4. OMEPRAZOLE [Concomitant]
     Indication: GASTRIC DISORDER
     Dosage: 1 DF, QD
     Route: 048
  5. IXIA [Concomitant]
     Dosage: 10 MG, QD
     Route: 048
  6. ENOXAPARIN SODIUM [Concomitant]
     Dosage: 1 DF, QD
     Route: 058
  7. FUROSEMIDA                         /00032601/ [Concomitant]
     Dosage: 1.5 DF, QD
     Route: 048
  8. NEBIVOLOL HCL [Concomitant]
     Dosage: 0.25 DF, QD
     Route: 048
  9. AMIODARONE HCL [Concomitant]
     Dosage: 200 MG, QD
     Route: 048
  10. NOLOTIL [Concomitant]
     Indication: ANALGESIC THERAPY
     Dosage: 1 DF, EVERY 8 HRS
     Route: 048
  11. LEVOTHYROXINE SODIUM [Concomitant]
     Dosage: 1 DF, QD
     Route: 048
  12. LATANOPROST [Concomitant]
     Dosage: 1 DF, QD
     Route: 047

REACTIONS (7)
  - VOMITING [None]
  - RENAL FAILURE [None]
  - CARDIAC FAILURE [None]
  - DEATH [None]
  - RESPIRATORY FAILURE [None]
  - PNEUMONIA [None]
  - GENERAL PHYSICAL HEALTH DETERIORATION [None]
